FAERS Safety Report 25679102 (Version 2)
Quarter: 2025Q3

REPORT INFORMATION
  Report Type: Spontaneous
  Country: EU (occurrence: EU)
  Receive Date: 20250814
  Receipt Date: 20250917
  Transmission Date: 20251020
  Serious: Yes (Life-Threatening, Hospitalization, Other)
  Sender: SANDOZ
  Company Number: EU-UCBSA-2022001150

PATIENT
  Age: 4 Month
  Sex: Male

DRUGS (19)
  1. ACTH [Suspect]
     Active Substance: CORTICOTROPIN
     Indication: Seizure
     Route: 065
  2. CLONAZEPAM [Suspect]
     Active Substance: CLONAZEPAM
     Indication: Seizure
     Route: 065
  3. DIAZEPAM [Suspect]
     Active Substance: DIAZEPAM
     Indication: Seizure
     Route: 065
  4. LEVETIRACETAM [Suspect]
     Active Substance: LEVETIRACETAM
     Indication: Myoclonic epilepsy
     Route: 042
  5. MIDAZOLAM HYDROCHLORIDE [Suspect]
     Active Substance: MIDAZOLAM HYDROCHLORIDE
     Indication: Myoclonic epilepsy
     Route: 042
  6. PHENOBARBITAL [Suspect]
     Active Substance: PHENOBARBITAL
     Indication: Myoclonic epilepsy
     Route: 042
  7. PHENYTOIN [Suspect]
     Active Substance: PHENYTOIN
     Indication: Seizure
     Route: 065
  8. POTASSIUM BROMIDE [Suspect]
     Active Substance: POTASSIUM BROMIDE
     Indication: Seizure
     Route: 065
  9. STIRIPENTOL [Suspect]
     Active Substance: STIRIPENTOL
     Indication: Seizure
     Route: 065
  10. TOPIRAMATE [Suspect]
     Active Substance: TOPIRAMATE
     Indication: Seizure
     Route: 065
  11. THIOPENTAL [Suspect]
     Active Substance: THIOPENTAL
     Indication: Seizure
     Route: 065
  12. VALPROIC ACID [Suspect]
     Active Substance: VALPROIC ACID
     Indication: Seizure
     Route: 065
  13. VIGABATRIN [Suspect]
     Active Substance: VIGABATRIN
     Indication: Seizure
     Route: 065
  14. ZONISAMIDE [Suspect]
     Active Substance: ZONISAMIDE
     Indication: Seizure
     Route: 065
  15. CHLORAL HYDRATE [Concomitant]
     Active Substance: CHLORAL HYDRATE
     Indication: Product used for unknown indication
     Route: 065
  16. Immunoglobulin [Concomitant]
     Indication: Product used for unknown indication
     Route: 065
  17. Immunoglobulin [Concomitant]
     Indication: Product used for unknown indication
     Route: 065
  18. PROPOFOL [Concomitant]
     Active Substance: PROPOFOL
     Indication: Seizure
     Route: 065
  19. PYRIDOXINE [Concomitant]
     Active Substance: PYRIDOXINE
     Indication: Product used for unknown indication
     Route: 065

REACTIONS (11)
  - Drug ineffective [Unknown]
  - Respiratory failure [Unknown]
  - Myoclonic epilepsy [Unknown]
  - Clonic convulsion [Unknown]
  - Status epilepticus [Unknown]
  - Eye movement disorder [Unknown]
  - Multiple-drug resistance [Unknown]
  - General physical health deterioration [Unknown]
  - Hypotonia [Unknown]
  - Off label use [Unknown]
  - Off label use [Unknown]
